FAERS Safety Report 7599286-4 (Version None)
Quarter: 2011Q3

REPORT INFORMATION
  Report Type: 
  Country: None (occurrence: None)
  Receive Date: 20110711
  Receipt Date: 20090706
  Transmission Date: 20111222
  Serious: Yes (Other)
  Sender: FDA-Public Use
  Company Number: US-BAYER-201039266NA

PATIENT
  Age: 57 Year
  Sex: Female
  Weight: 86.621 kg

DRUGS (42)
  1. IMDUR [Concomitant]
     Dosage: 15 MG, QD
     Route: 048
  2. ACETYLSALICYLIC ACID SRT [Concomitant]
     Dosage: 81 MG, UNK
     Route: 048
  3. ROBAXIN [Concomitant]
     Dosage: 500 MG, BID, PRN
     Route: 048
  4. INSULIN [Concomitant]
     Dosage: UNK, DRIP-TITRATE
     Route: 042
     Dates: start: 20060924
  5. VANCOMYCIN [Concomitant]
     Dosage: UNK
     Route: 042
     Dates: start: 20060924
  6. RED BLOOD CELLS [Concomitant]
     Dosage: 2 U, UNK
     Route: 042
     Dates: start: 20060924, end: 20060924
  7. PHENYLEPHRINE HCL [Concomitant]
     Dosage: 0.3 UNK
     Route: 042
     Dates: start: 20060924
  8. LASIX [Concomitant]
     Dosage: 20 MG, UNK
     Route: 042
     Dates: start: 20060924
  9. AMITRIPTYLINE HCL [Concomitant]
     Dosage: 25 MG, BID
     Route: 048
  10. ETOMIDATE [Concomitant]
     Dosage: UNK
     Route: 042
     Dates: start: 20060924
  11. FENTANYL [Concomitant]
     Dosage: UNK
     Route: 042
     Dates: start: 20060924
  12. ISOVUE-370 [Concomitant]
     Dosage: UNK
     Route: 042
     Dates: start: 20060924, end: 20060924
  13. LISINOPRIL [Concomitant]
     Dosage: 2.5 MG, QD
     Route: 048
  14. HYDROCHLOROTHIAZIDE [Concomitant]
     Dosage: 12.5 MG, QD
     Route: 048
  15. PLAVIX [Concomitant]
     Dosage: 75 MG, QD
     Route: 048
  16. CALCIUM CHLORIDE [Concomitant]
     Dosage: 4 G, UNK
     Dates: start: 20060924
  17. HEPARIN [Concomitant]
     Dosage: 5000 U, UNK
     Route: 042
     Dates: start: 20060924
  18. PROTAMINE SULFATE [Concomitant]
     Dosage: 25 MG, UNK
     Route: 042
     Dates: start: 20060924
  19. PLATELETS [Concomitant]
     Dosage: 2 U, UNK
     Route: 042
     Dates: start: 20060924, end: 20060924
  20. TRASYLOL [Suspect]
     Dosage: 50 CC/HR (INFUSION)
     Route: 042
     Dates: start: 20060924, end: 20060924
  21. ENALAPRIL MALEATE [Concomitant]
     Dosage: 10 MG, QD
     Route: 048
  22. ZOLOFT [Concomitant]
     Dosage: 100 MG, QD
     Route: 048
  23. NORVASC [Concomitant]
     Dosage: 5 MG, QD
     Route: 048
  24. FRESH FROZEN PLASMA [Concomitant]
     Dosage: 1 U, UNK
     Route: 042
     Dates: start: 20060924, end: 20060924
  25. FIORICET [Concomitant]
     Dosage: 325-40-50 MG 1-2 Q6HRS, PRN
     Route: 048
  26. METOPROLOL TARTRATE [Concomitant]
     Dosage: 100 MG, QD
     Route: 048
  27. PROPOFOL [Concomitant]
     Dosage: UNK
     Route: 042
     Dates: start: 20060924
  28. NIPRIDE [Concomitant]
     Dosage: UNK
     Route: 042
     Dates: start: 20060924
  29. ALBUMIN (HUMAN) [Concomitant]
     Dosage: UNK
     Dates: start: 20060924, end: 20060924
  30. LISINOPRIL [Concomitant]
     Dosage: 10 MG, QD
     Route: 048
  31. ZOCOR [Concomitant]
     Dosage: 80 MG, QD
     Route: 048
  32. ROCURONIUM BROMIDE [Concomitant]
     Dosage: UNK
     Route: 042
     Dates: start: 20060924
  33. BACITRACIN [Concomitant]
     Dosage: 50000 U, UNK
     Route: 042
     Dates: start: 20060924
  34. PAPAVERINE [Concomitant]
     Dosage: 60 MG, UNK
     Route: 042
     Dates: start: 20060924
  35. SOLU-MEDROL [Concomitant]
     Dosage: 500 MG, UNK
     Route: 042
     Dates: start: 20060924
  36. TRASYLOL [Suspect]
     Indication: PRODUCT USED FOR UNKNOWN INDICATION
     Dosage: 200 ML, ONCE, LOADING DOSE
     Route: 042
     Dates: start: 20060924, end: 20060924
  37. MOBIC [Concomitant]
     Dosage: 7.5 MG, UNK
     Route: 048
  38. ACTOS [Concomitant]
     Dosage: 15 MG, QD
     Route: 048
  39. LANTUS [Concomitant]
     Dosage: 15 U, HS
  40. NITROGLYCERIN [Concomitant]
     Dosage: UNK
     Route: 042
     Dates: start: 20060924
  41. KANAMYCIN [Concomitant]
     Dosage: 1 G IN 1 LITER OF LACTATE RINGERS
     Route: 042
     Dates: start: 20060924
  42. OMNIPAQUE 140 [Concomitant]
     Dosage: 50 ML, UNK
     Route: 042
     Dates: start: 20060924, end: 20060924

REACTIONS (12)
  - RENAL FAILURE [None]
  - RENAL IMPAIRMENT [None]
  - MYOCARDIAL INFARCTION [None]
  - ANXIETY [None]
  - UNEVALUABLE EVENT [None]
  - MULTI-ORGAN FAILURE [None]
  - STRESS [None]
  - FEAR [None]
  - RENAL INJURY [None]
  - EMOTIONAL DISTRESS [None]
  - PAIN [None]
  - INJURY [None]
